FAERS Safety Report 24135860 (Version 1)
Quarter: 2024Q3

REPORT INFORMATION
  Report Type: Spontaneous
  Country: CN (occurrence: CN)
  Receive Date: 20240725
  Receipt Date: 20240725
  Transmission Date: 20241016
  Serious: Yes (Life-Threatening)
  Sender: BAXTER
  Company Number: None

PATIENT
  Age: 59 Year
  Sex: Female
  Weight: 48 kg

DRUGS (4)
  1. MANNITOL [Suspect]
     Active Substance: MANNITOL
     Indication: Meniere^s disease
     Dosage: 100 ML ONCE DAILY (DOSAGE FORM: INJECTION)
     Route: 041
     Dates: start: 20240703, end: 20240710
  2. DEXTROSE [Suspect]
     Active Substance: DEXTROSE\DEXTROSE MONOHYDRATE
     Indication: Medication dilution
     Dosage: 500 ML ONCE DAILY (DOSAGE FORM: INJECTION)
     Route: 041
     Dates: start: 20240703, end: 20240710
  3. PREDNISOLONE [Suspect]
     Active Substance: PREDNISOLONE
     Indication: Meniere^s disease
     Dosage: 20 MG ONCE DAILY
     Route: 041
     Dates: start: 20240703, end: 20240710
  4. HYDROCHLOROTHIAZIDE [Suspect]
     Active Substance: HYDROCHLOROTHIAZIDE
     Indication: Meniere^s disease
     Dosage: 25 MG ONCE DAILY
     Route: 048
     Dates: start: 20240703, end: 20240717

REACTIONS (1)
  - Blood potassium decreased [Recovering/Resolving]

NARRATIVE: CASE EVENT DATE: 20240707
